FAERS Safety Report 6702954-7 (Version None)
Quarter: 2010Q2

REPORT INFORMATION
  Report Type: 
  Country: None (occurrence: None)
  Receive Date: 20100429
  Receipt Date: 20100421
  Transmission Date: 20101027
  Serious: Yes (Hospitalization, Disabling, Other)
  Sender: FDA-Public Use
  Company Number: US-MERCK-0707USA00490

PATIENT
  Age: 53 Year
  Sex: Female
  Weight: 58 kg

DRUGS (3)
  1. FOSAMAX [Suspect]
     Indication: OSTEOPOROSIS
     Route: 048
     Dates: start: 19980101, end: 20051201
  2. MEDROXYPROGESTERONE ACETATE [Suspect]
     Route: 065
  3. ESTRADIOL [Suspect]
     Route: 065

REACTIONS (65)
  - ADVERSE DRUG REACTION [None]
  - ADVERSE EVENT [None]
  - ALOPECIA EFFLUVIUM [None]
  - ANXIETY [None]
  - ARTHRALGIA [None]
  - ARTHROPATHY [None]
  - BACK INJURY [None]
  - BACK PAIN [None]
  - BONE DENSITY DECREASED [None]
  - COMPLEX REGIONAL PAIN SYNDROME [None]
  - CONCUSSION [None]
  - CONSTIPATION [None]
  - CONVULSION [None]
  - DECREASED APPETITE [None]
  - DENTAL CARIES [None]
  - DEPRESSION [None]
  - DIVERTICULUM [None]
  - DIZZINESS [None]
  - DRUG INEFFECTIVE [None]
  - DYSPEPSIA [None]
  - DYSPLASIA [None]
  - EDENTULOUS [None]
  - EPISTAXIS [None]
  - FACE INJURY [None]
  - FALL [None]
  - FOOD INTOLERANCE [None]
  - GINGIVAL BLEEDING [None]
  - GINGIVAL DISORDER [None]
  - HAEMORRHOIDS [None]
  - HEAD INJURY [None]
  - HYPOAESTHESIA [None]
  - INCREASED APPETITE [None]
  - INJURY [None]
  - JAW DISORDER [None]
  - JOINT RANGE OF MOTION DECREASED [None]
  - LIBIDO DECREASED [None]
  - LIMB INJURY [None]
  - MALAISE [None]
  - MELANOCYTIC NAEVUS [None]
  - MOUTH INJURY [None]
  - MUSCLE SPASMS [None]
  - NERVOUSNESS [None]
  - ORAL INFECTION [None]
  - OSTEOMYELITIS [None]
  - OSTEONECROSIS [None]
  - OSTEOPENIA [None]
  - PAIN IN EXTREMITY [None]
  - PAIN IN JAW [None]
  - PARAESTHESIA [None]
  - PRURITUS [None]
  - RECTOCELE [None]
  - ROAD TRAFFIC ACCIDENT [None]
  - SINUSITIS [None]
  - SKIN LESION [None]
  - SPINAL CORD DISORDER [None]
  - STRESS URINARY INCONTINENCE [None]
  - THROMBOPHLEBITIS SUPERFICIAL [None]
  - THYROID DISORDER [None]
  - TOOTH ABSCESS [None]
  - TOOTH LOSS [None]
  - TOOTHACHE [None]
  - URINARY TRACT INFECTION [None]
  - VULVOVAGINAL CANDIDIASIS [None]
  - WEIGHT INCREASED [None]
  - WHIPLASH INJURY [None]
